FAERS Safety Report 12943049 (Version 1)
Quarter: 2016Q4

REPORT INFORMATION
  Report Type: Report from Study
  Country: US (occurrence: US)
  Receive Date: 20161115
  Receipt Date: 20161115
  Transmission Date: 20170207
  Serious: Yes (Other)
  Sender: FDA-Public Use
  Company Number: US-PFIZER INC-2016528839

PATIENT
  Age: 59 Year
  Sex: Female

DRUGS (2)
  1. PENTAZOCINE LACTATE [Suspect]
     Active Substance: PENTAZOCINE LACTATE
     Dosage: 180 MG PER 24 HR
  2. PENTAZOCINE LACTATE [Suspect]
     Active Substance: PENTAZOCINE LACTATE
     Dosage: 750 MG PER 24 HR
     Route: 048

REACTIONS (3)
  - Drug abuse [Unknown]
  - Skin ulcer [Unknown]
  - Scleroderma [Unknown]
